FAERS Safety Report 4416059-1 (Version None)
Quarter: 2004Q3

REPORT INFORMATION
  Report Type: 
  Country: None (occurrence: None)
  Receive Date: 20040802
  Receipt Date: 20040719
  Transmission Date: 20050211
  Serious: Yes (Hospitalization)
  Sender: FDA-Public Use
  Company Number: 2004049208

PATIENT
  Age: 72 Year
  Sex: Female

DRUGS (7)
  1. AMLODIPINE [Suspect]
     Indication: HYPERTENSION
     Dosage: 10 MG (10 MG, 1 IN 1 D), ORAL
     Route: 048
     Dates: end: 20040626
  2. GABAPENTIN [Suspect]
     Indication: ILL-DEFINED DISORDER
     Dosage: 600 MG (600 MG , 1 IN 1 D), ORAL
     Route: 048
     Dates: start: 20040614
  3. PERINDOPRIL (PERINDOPRIL) [Suspect]
     Indication: ILL-DEFINED DISORDER
     Dosage: 2 MG (2 MG, 1 IN 1 D), ORAL
     Route: 048
     Dates: start: 20040614
  4. MORPHINE SULFATE [Concomitant]
  5. METFORMIN HCL [Concomitant]
  6. IBUPROFEN [Concomitant]
  7. ACETYLSALICYLIC ACID SRT [Concomitant]

REACTIONS (3)
  - BLOOD ALKALINE PHOSPHATASE INCREASED [None]
  - PAIN IN EXTREMITY [None]
  - SKIN ULCER [None]
